FAERS Safety Report 9897106 (Version 4)
Quarter: 2017Q3

REPORT INFORMATION
  Report Type: Report from Study
  Country: DE (occurrence: DE)
  Receive Date: 20140214
  Receipt Date: 20170823
  Transmission Date: 20171128
  Serious: Yes (Death)
  Sender: FDA-Public Use
  Company Number: DE-ROCHE-1349285

PATIENT
  Age: 46 Year
  Sex: Male
  Weight: 112 kg

DRUGS (2)
  1. RIBAVIRIN. [Suspect]
     Active Substance: RIBAVIRIN
     Indication: CHRONIC HEPATITIS C
     Route: 065
     Dates: end: 20140208
  2. PEG-INTERFERON ALFA 2A [Suspect]
     Active Substance: PEGINTERFERON ALFA-2A
     Indication: CHRONIC HEPATITIS C
     Route: 058
     Dates: start: 20130602, end: 20140208

REACTIONS (1)
  - Gastric varices haemorrhage [Fatal]

NARRATIVE: CASE EVENT DATE: 20140208
